FAERS Safety Report 9417033 (Version 2)
Quarter: 2013Q3

REPORT INFORMATION
  Report Type: Spontaneous
  Country: US (occurrence: None)
  Receive Date: 20130722
  Receipt Date: 20130808
  Transmission Date: 20140515
  Serious: Yes (Hospitalization)
  Sender: FDA-Public Use
  Company Number: 130214

PATIENT
  Age: 56 Year
  Sex: Female
  Weight: 150 kg

DRUGS (2)
  1. GOLYTELY [Suspect]
     Indication: COLONOSCOPY
     Dosage: 2 X 6 OZ. BOTTLE/1X/PO
     Route: 048
     Dates: start: 20121128, end: 20121129
  2. METOPROLOL [Concomitant]

REACTIONS (3)
  - Urticaria [None]
  - Asthenia [None]
  - Anaphylactic shock [None]
